FAERS Safety Report 5690894-4 (Version None)
Quarter: 2008Q2

REPORT INFORMATION
  Report Type: 
  Country: None (occurrence: None)
  Receive Date: 20080401
  Receipt Date: 20080328
  Transmission Date: 20081010
  Serious: Yes (Other)
  Sender: FDA-Public Use
  Company Number: JP-ASTRAZENECA-2008AP02192

PATIENT
  Age: 70 Year
  Sex: Female

DRUGS (10)
  1. IRESSA [Suspect]
     Indication: NON-SMALL CELL LUNG CANCER
     Route: 048
     Dates: start: 20071205, end: 20080228
  2. HALFDIGOXIN [Concomitant]
     Route: 048
  3. SELBEX [Concomitant]
     Route: 048
  4. MUCOSOLVAN [Concomitant]
     Route: 048
  5. MAGMITT [Concomitant]
     Dosage: UNKNOWN DOSE
     Route: 048
  6. UNKNOWNDRUG [Concomitant]
     Route: 048
  7. ARTIST [Concomitant]
     Route: 048
  8. URSO 250 [Concomitant]
     Route: 048
  9. RINDERON-DP [Concomitant]
     Dosage: UNKNOWN DOSE
     Route: 062
  10. PYDOXAL [Concomitant]
     Dosage: 10 MG X 6 TABLETS/DAY
     Route: 048

REACTIONS (2)
  - PARONYCHIA [None]
  - RASH [None]
